FAERS Safety Report 7302250-3 (Version None)
Quarter: 2011Q1

REPORT INFORMATION
  Report Type: 
  Country: None (occurrence: None)
  Receive Date: 20110218
  Receipt Date: 20110215
  Transmission Date: 20110831
  Serious: Yes (Hospitalization, Other)
  Sender: FDA-Public Use
  Company Number: US-ABBOTT-11P-163-0705698-00

PATIENT
  Sex: Male
  Weight: 64.468 kg

DRUGS (2)
  1. HUMIRA [Suspect]
     Indication: CROHN'S DISEASE
     Route: 058
     Dates: start: 20080101, end: 20101201
  2. HUMIRA [Suspect]
     Dosage: RESTARTED LOADING DOSE
     Route: 058
     Dates: start: 20110213

REACTIONS (7)
  - SEPSIS [None]
  - UMBILICAL HERNIA [None]
  - CROHN'S DISEASE [None]
  - INTESTINAL OBSTRUCTION [None]
  - VOMITING [None]
  - PYREXIA [None]
  - ABDOMINAL PAIN [None]
